FAERS Safety Report 8596731-2 (Version None)
Quarter: 2012Q3

REPORT INFORMATION
  Report Type: 
  Country: None (occurrence: None)
  Receive Date: 20120815
  Receipt Date: 20120809
  Transmission Date: 20120928
  Serious: No
  Sender: FDA-Public Use
  Company Number: US-ASTRAZENECA-2012SE56273

PATIENT
  Sex: Female

DRUGS (1)
  1. SYMBICORT [Suspect]
     Route: 055

REACTIONS (5)
  - ASTHMA [None]
  - BRONCHITIS [None]
  - VISION BLURRED [None]
  - VISUAL IMPAIRMENT [None]
  - SEASONAL ALLERGY [None]
